FAERS Safety Report 19430338 (Version 1)
Quarter: 2021Q2

REPORT INFORMATION
  Report Type: Spontaneous
  Country: BR (occurrence: BR)
  Receive Date: 20210617
  Receipt Date: 20210617
  Transmission Date: 20210717
  Serious: Yes (Other)
  Sender: FDA-Public Use
  Company Number: BR-NOVOPROD-814133

PATIENT
  Age: 38 Year
  Sex: Male
  Weight: 75.5 kg

DRUGS (9)
  1. INSULIN GLARGINE [Concomitant]
     Active Substance: INSULIN GLARGINE
     Indication: TYPE 1 DIABETES MELLITUS
     Dosage: 100 IU, QD
     Route: 058
     Dates: start: 200811, end: 200901
  2. INSULIN ASPART [Suspect]
     Active Substance: INSULIN ASPART
     Dosage: 1: 24CHO
     Route: 065
  3. INSULIN GLARGINE [Concomitant]
     Active Substance: INSULIN GLARGINE
     Dosage: 12 UNK
     Route: 065
  4. INSULIN ASPART [Suspect]
     Active Substance: INSULIN ASPART
     Dosage: 1: 20CHO
     Route: 065
  5. INSULIN ASPART [Suspect]
     Active Substance: INSULIN ASPART
     Dosage: 1: 15CHO COFFEE, 1: 12CHO LUNCH, 1: 22CHO SNACK1: 18CHO DINNER
     Route: 065
     Dates: start: 201004
  6. INSULIN GLARGINE [Concomitant]
     Active Substance: INSULIN GLARGINE
     Dosage: 14 IU, QD
     Route: 058
     Dates: start: 201004
  7. INSULIN ASPART [Suspect]
     Active Substance: INSULIN ASPART
     Indication: TYPE 1 DIABETES MELLITUS
     Dosage: UNK
     Route: 065
     Dates: start: 200811, end: 200901
  8. ALPRAZOLAM. [Concomitant]
     Active Substance: ALPRAZOLAM
     Dosage: 1 MG, BID
     Route: 065
  9. VENLAFAXIN [Concomitant]
     Active Substance: VENLAFAXINE HYDROCHLORIDE
     Dosage: 150 MG, QD
     Route: 065

REACTIONS (4)
  - Hyperglycaemic seizure [Unknown]
  - Insomnia [Unknown]
  - Appendicectomy [Unknown]
  - Hypoglycaemia [Unknown]

NARRATIVE: CASE EVENT DATE: 201111
